FAERS Safety Report 9314093 (Version 3)
Quarter: 2013Q3

REPORT INFORMATION
  Report Type: Spontaneous
  Country: DE (occurrence: DE)
  Receive Date: 20130529
  Receipt Date: 20130716
  Transmission Date: 20140515
  Serious: Yes (Life-Threatening, Hospitalization, Other)
  Sender: FDA-Public Use
  Company Number: DE-JNJFOC-20130513989

PATIENT
  Age: 46 Year
  Sex: Female
  Weight: 73 kg

DRUGS (4)
  1. XARELTO [Suspect]
     Indication: EMBOLISM VENOUS
     Route: 048
  2. XARELTO [Suspect]
     Indication: EMBOLISM VENOUS
     Route: 048
  3. XARELTO [Suspect]
     Indication: PULMONARY EMBOLISM
     Route: 048
  4. XARELTO [Suspect]
     Indication: PULMONARY EMBOLISM
     Route: 048

REACTIONS (4)
  - Pulmonary embolism [Not Recovered/Not Resolved]
  - Underdose [Unknown]
  - Drug ineffective [Unknown]
  - Drug dose omission [Unknown]
